FAERS Safety Report 7457464-9 (Version None)
Quarter: 2011Q1

REPORT INFORMATION
  Report Type: 
  Country: None (occurrence: None)
  Receive Date: 20110302
  Receipt Date: 20101116
  Transmission Date: 20110831
  Serious: Yes (Other)
  Sender: FDA-Public Use
  Company Number: 163-21880-07060512

PATIENT
  Age: 74 Year
  Sex: Male

DRUGS (9)
  1. ASPIRIN [Concomitant]
  2. REVLIMID [Suspect]
  3. REVLIMID [Suspect]
     Indication: MYELODYSPLASTIC SYNDROME
     Dosage: 10 MG, 1 IN 1 D, PO, 5 MG, 1 IN 1 D, PO, 5 MG, QOD 14/28 DAYS, PO
     Route: 048
     Dates: start: 20071223
  4. REVLIMID [Suspect]
     Indication: MYELODYSPLASTIC SYNDROME
     Dosage: 10 MG, 1 IN 1 D, PO, 5 MG, 1 IN 1 D, PO, 5 MG, QOD 14/28 DAYS, PO
     Route: 048
     Dates: start: 20070122
  5. REVLIMID [Suspect]
     Indication: MYELODYSPLASTIC SYNDROME
     Dosage: 10 MG, 1 IN 1 D, PO, 5 MG, 1 IN 1 D, PO, 5 MG, QOD 14/28 DAYS, PO
     Route: 048
     Dates: start: 20061201, end: 20070101
  6. REVLIMID [Suspect]
  7. MULTIVITAMIN [Concomitant]
  8. REVLIMID [Suspect]
  9. REVLIMID [Suspect]

REACTIONS (5)
  - SKIN DISCOLOURATION [None]
  - RED BLOOD CELL COUNT DECREASED [None]
  - DRY SKIN [None]
  - RASH [None]
  - DIARRHOEA [None]
